FAERS Safety Report 9296883 (Version 1)
Quarter: 2013Q2

REPORT INFORMATION
  Report Type: Report from Study
  Country: US (occurrence: US)
  Receive Date: 20130517
  Receipt Date: 20130517
  Transmission Date: 20140414
  Serious: Yes (Hospitalization)
  Sender: FDA-Public Use
  Company Number: US-ABBOTT-13P-163-1060424-00

PATIENT
  Age: 25 Year
  Sex: Female
  Weight: 97.16 kg

DRUGS (6)
  1. PROZAC [Concomitant]
     Indication: DEPRESSION
     Route: 048
     Dates: start: 20120715
  2. HIBICLENS [Concomitant]
     Indication: HIDRADENITIS
     Route: 061
     Dates: start: 20130107
  3. RICOLA [Concomitant]
     Indication: INFLUENZA
     Route: 048
     Dates: start: 20121217, end: 20121224
  4. HALLS [Concomitant]
     Indication: NASOPHARYNGITIS
     Route: 048
     Dates: start: 20130105, end: 20130107
  5. CLEARASIL [Concomitant]
     Indication: HIDRADENITIS
     Route: 061
     Dates: start: 20121109, end: 20130106
  6. HUMIRA [Suspect]
     Indication: HIDRADENITIS
     Route: 058
     Dates: start: 20121008, end: 20130218

REACTIONS (1)
  - Ectopic pregnancy [Not Recovered/Not Resolved]
